FAERS Safety Report 25458305 (Version 1)
Quarter: 2025Q2

REPORT INFORMATION
  Report Type: Spontaneous
  Country: US (occurrence: US)
  Receive Date: 20250620
  Receipt Date: 20250620
  Transmission Date: 20250717
  Serious: No
  Sender: ALEXION PHARMACEUTICALS
  Company Number: US-AstraZeneca-CH-00871233A

PATIENT
  Age: 46 Year

DRUGS (6)
  1. FASENRA [Suspect]
     Active Substance: BENRALIZUMAB
     Indication: Single umbilical artery
  2. BUDESONIDE [Suspect]
     Active Substance: BUDESONIDE
     Route: 065
  3. ADVAIR HFA [Suspect]
     Active Substance: FLUTICASONE PROPIONATE\SALMETEROL XINAFOATE
     Route: 065
  4. MONTELUKAST [Concomitant]
     Active Substance: MONTELUKAST
     Route: 065
  5. FLONASE [Concomitant]
     Active Substance: FLUTICASONE PROPIONATE
     Route: 065
  6. ASTEPRO [Concomitant]
     Active Substance: AZELASTINE HYDROCHLORIDE
     Route: 065

REACTIONS (8)
  - Product use issue [Unknown]
  - Cough [Unknown]
  - Sneezing [Unknown]
  - Rhinorrhoea [Unknown]
  - Oral candidiasis [Unknown]
  - Asthma [Unknown]
  - Gastrooesophageal reflux disease [Unknown]
  - Rhinitis allergic [Unknown]
